FAERS Safety Report 8048249-3 (Version None)
Quarter: 2011Q4

REPORT INFORMATION
  Report Type: 
  Country: None (occurrence: None)
  Receive Date: 20111209
  Receipt Date: 20111031
  Transmission Date: 20120403
  Serious: No
  Sender: FDA-Public Use
  Company Number: 2011SP051348

PATIENT
  Age: 59 Year
  Sex: Female
  Weight: 92.53 kg

DRUGS (5)
  1. VICTRELIS [Suspect]
     Indication: PRODUCT USED FOR UNKNOWN INDICATION
     Dates: start: 20111007
  2. PEGASYS [Suspect]
     Indication: PRODUCT USED FOR UNKNOWN INDICATION
     Dosage: 180 MCG;QW;SC
     Route: 058
     Dates: start: 20110909
  3. PROTONIX [Concomitant]
  4. ACETAMINOPHEN [Concomitant]
  5. RIBAVIRIN [Suspect]
     Indication: PRODUCT USED FOR UNKNOWN INDICATION
     Dosage: 600 MG; BID; PO
     Route: 048
     Dates: start: 20110909

REACTIONS (5)
  - NAUSEA [None]
  - DIZZINESS [None]
  - CHILLS [None]
  - ASTHENIA [None]
  - DYSGEUSIA [None]
